FAERS Safety Report 18010941 (Version 1)
Quarter: 2020Q3

REPORT INFORMATION
  Report Type: Spontaneous
  Country: ES (occurrence: ES)
  Receive Date: 20200710
  Receipt Date: 20200710
  Transmission Date: 20201103
  Serious: Yes (Other)
  Sender: FDA-Public Use
  Company Number: NVSC2020ES188743

PATIENT
  Age: 81 Year
  Sex: Male
  Weight: 83 kg

DRUGS (4)
  1. KALETRA [Interacting]
     Active Substance: LOPINAVIR\RITONAVIR
     Indication: COVID-19
     Dosage: 2 DF, QD ( 200 /50 MG COMPRIMIDOS RECUBIERTOS CON PELICULA, 120 COMPRIMIDOS)
     Route: 048
     Dates: start: 20200319, end: 20200326
  2. CEFTRIAXONA [Concomitant]
     Active Substance: CEFTRIAXONE
     Indication: COVID-19
     Dosage: 1 G, QD
     Route: 042
     Dates: start: 20200319, end: 20200323
  3. AZITHROMYCIN ANHYDROUS. [Suspect]
     Active Substance: AZITHROMYCIN ANHYDROUS
     Indication: COVID-19
     Dosage: 500 MG, QD
     Route: 048
     Dates: start: 20200319, end: 20200320
  4. HYDROXYCHLOROQUINE [Interacting]
     Active Substance: HYDROXYCHLOROQUINE
     Indication: COVID-19
     Dosage: 400 MG, QD
     Route: 048
     Dates: start: 20200319, end: 20200323

REACTIONS (1)
  - Long QT syndrome [Recovered/Resolved]

NARRATIVE: CASE EVENT DATE: 20200320
